FAERS Safety Report 25853697 (Version 1)
Quarter: 2025Q3

REPORT INFORMATION
  Report Type: Report from Study
  Country: US (occurrence: US)
  Receive Date: 20250926
  Receipt Date: 20250926
  Transmission Date: 20251021
  Serious: Yes (Other)
  Sender: BAYER HEALTHCARE PHARMACEUTICALS INC.
  Company Number: US-BAYER-2025A124558

PATIENT
  Age: 53 Year
  Sex: Male

DRUGS (2)
  1. STIVARGA [Suspect]
     Active Substance: REGORAFENIB MONOHYDRATE
     Indication: Colon cancer
     Dosage: 80 MG, QD (ONCE DAILY FOR 21 DAYS ON, 7 DAYS OFF)
     Dates: start: 20250918
  2. STIVARGA [Suspect]
     Active Substance: REGORAFENIB MONOHYDRATE
     Indication: Colon cancer
     Dosage: 80 MG, QD (ONCE DAILY FOR 21 DAYS ON, 7 DAYS OFF)
     Dates: start: 2025

REACTIONS (6)
  - Spinal operation [Unknown]
  - Dehydration [Recovering/Resolving]
  - Gastrointestinal infection [Recovering/Resolving]
  - Vomiting [Recovering/Resolving]
  - Blood pressure increased [Recovering/Resolving]
  - Product use issue [None]

NARRATIVE: CASE EVENT DATE: 20250901
